FAERS Safety Report 16775897 (Version 1)
Quarter: 2019Q3

REPORT INFORMATION
  Report Type: Spontaneous
  Country: DE (occurrence: DE)
  Receive Date: 20190905
  Receipt Date: 20190905
  Transmission Date: 20191005
  Serious: Yes (Other)
  Sender: FDA-Public Use
  Company Number: DE-PFIZER INC-2019379141

PATIENT
  Sex: Female
  Weight: 111 kg

DRUGS (2)
  1. SERTRALINE HCL [Suspect]
     Active Substance: SERTRALINE HYDROCHLORIDE
     Dosage: UNK
     Dates: start: 201901
  2. MEDIKINET [METHYLPHENIDATE] [Suspect]
     Active Substance: METHYLPHENIDATE
     Dosage: UNK
     Dates: start: 201807

REACTIONS (6)
  - Musculoskeletal stiffness [Unknown]
  - Peripheral swelling [Unknown]
  - Muscular weakness [Unknown]
  - Feeling abnormal [Unknown]
  - Deep vein thrombosis [Unknown]
  - Tension [Unknown]

NARRATIVE: CASE EVENT DATE: 20190607
